FAERS Safety Report 9540821 (Version 1)
Quarter: 2013Q3

REPORT INFORMATION
  Report Type: Spontaneous
  Country: US (occurrence: US)
  Receive Date: 20130920
  Receipt Date: 20130920
  Transmission Date: 20140515
  Serious: Yes (Other)
  Sender: FDA-Public Use
  Company Number: US-BAYER-2013-111410

PATIENT
  Age: 22 Year
  Sex: Male

DRUGS (1)
  1. DEXTROMETHORPHAN (ROMILAR, XINLI) +/- GUAIFENESIN [Suspect]
     Dosage: 10 DF, UNK

REACTIONS (4)
  - Ureteric obstruction [None]
  - Nephrolithiasis [None]
  - Intentional overdose [None]
  - Drug abuse [None]
